FAERS Safety Report 16778896 (Version 1)
Quarter: 2019Q3

REPORT INFORMATION
  Report Type: Spontaneous
  Country: BE (occurrence: BE)
  Receive Date: 20190906
  Receipt Date: 20190906
  Transmission Date: 20191005
  Serious: Yes (Other)
  Sender: FDA-Public Use
  Company Number: BE-SA-2019SA142220

PATIENT
  Age: 53 Year
  Sex: Female

DRUGS (17)
  1. ELIQUIS [Concomitant]
     Active Substance: APIXABAN
  2. ALEMTUZUMAB [Suspect]
     Active Substance: ALEMTUZUMAB
     Dosage: UNK UNK, UNK
     Route: 041
     Dates: start: 201709, end: 201709
  3. BACLOFEN. [Concomitant]
     Active Substance: BACLOFEN
     Dosage: 25 MG, FREQUENCY 1 TO 2/D
  4. CANNABIS [Concomitant]
     Active Substance: CANNABIS SATIVA SUBSP. INDICA TOP
     Dosage: SPRAY
  5. RIVOTRIL [Concomitant]
     Active Substance: CLONAZEPAM
     Dosage: 2 MG, QD
  6. NOBITEN [NEBIVOLOL] [Concomitant]
     Dosage: FREQUENCY 1/2CO
  7. PANTOMED [DEXPANTHENOL] [Concomitant]
     Dosage: 40 MG
  8. KURKUMA [CURCUMA LONGA] [Concomitant]
     Dosage: UNK UNK, BID
  9. RUPATALL [Concomitant]
  10. CYMBALTA [Concomitant]
     Active Substance: DULOXETINE HYDROCHLORIDE
     Dosage: 60 MG, BID
  11. LYRICA [Concomitant]
     Active Substance: PREGABALIN
     Dosage: 300 MG, BID
  12. BEFACT [CYANOCOBALAMIN;PYRIDOXINE;THIAMINE] [Concomitant]
  13. ALEMTUZUMAB [Suspect]
     Active Substance: ALEMTUZUMAB
     Indication: MULTIPLE SCLEROSIS
     Dosage: UNK UNK, UNK
     Route: 041
     Dates: start: 201609, end: 201609
  14. RILATINE [Concomitant]
     Active Substance: METHYLPHENIDATE HYDROCHLORIDE
     Dosage: 10 MG, BID
  15. URICRAN [Concomitant]
  16. TRADONAL [Concomitant]
     Active Substance: TRAMADOL HYDROCHLORIDE
     Dosage: UNK UNK, PRN
  17. TYSABRI [Concomitant]
     Active Substance: NATALIZUMAB
     Dosage: UNK
     Dates: start: 2009, end: 201608

REACTIONS (10)
  - Superior vena cava syndrome [Unknown]
  - Complication of device insertion [Unknown]
  - Scar [Unknown]
  - Osteoarthritis [Unknown]
  - Asthma [Unknown]
  - Peripheral nerve destruction [Unknown]
  - Dyspnoea [Unknown]
  - Venous thrombosis [Unknown]
  - Central venous catheterisation [Unknown]
  - Deep vein thrombosis [Unknown]

NARRATIVE: CASE EVENT DATE: 201701
